FAERS Safety Report 6260990-1 (Version None)
Quarter: 2009Q3

REPORT INFORMATION
  Report Type: 
  Country: None (occurrence: None)
  Receive Date: 20090707
  Receipt Date: 20090627
  Transmission Date: 20100115
  Serious: Yes (Other)
  Sender: FDA-Public Use
  Company Number: CHPA2009US14396

PATIENT
  Age: 54 Year
  Sex: Female

DRUGS (1)
  1. THERAFLU SUGAR FREE NIGHTTIME SEVERE COLD+COUGH (NCH)(PARACETAMOL, DIP [Suspect]
     Dosage: 1 DF, QHS, ORAL
     Route: 048
     Dates: start: 20090626

REACTIONS (3)
  - BLOOD GLUCOSE INCREASED [None]
  - CONCOMITANT DISEASE AGGRAVATED [None]
  - DIABETES MELLITUS [None]
